FAERS Safety Report 8242412-4 (Version None)
Quarter: 2012Q1

REPORT INFORMATION
  Report Type: 
  Country: None (occurrence: None)
  Receive Date: 20120329
  Receipt Date: 20120321
  Transmission Date: 20120608
  Serious: Yes (Other)
  Sender: FDA-Public Use
  Company Number: US-US-EMD SERONO, INC.-7120942

PATIENT
  Sex: Male

DRUGS (3)
  1. TYLENOL [Concomitant]
     Indication: PREMEDICATION
  2. NAPROXEN (ALEVE) [Concomitant]
     Indication: BACK DISORDER
  3. REBIF [Suspect]
     Indication: MULTIPLE SCLEROSIS
     Route: 058
     Dates: start: 20120215, end: 20120309

REACTIONS (2)
  - PNEUMONIA [None]
  - FATIGUE [None]
